FAERS Safety Report 5541809-0 (Version None)
Quarter: 2007Q4

REPORT INFORMATION
  Report Type: 
  Country: None (occurrence: None)
  Receive Date: 20071210
  Receipt Date: 20041201
  Transmission Date: 20080405
  Serious: Yes (Other)
  Sender: FDA-Public Use
  Company Number: FR-JNJFOC-20071101129

PATIENT
  Age: 40 Year
  Sex: Female
  Weight: 79 kg

DRUGS (4)
  1. HALOPERIDOL DECANOATE [Suspect]
     Indication: SCHIZOPHRENIA, PARANOID TYPE
     Dosage: 101-200MG
     Route: 050
  2. ACE INHIBITORS [Concomitant]
     Indication: HYPERTENSION
     Route: 065
  3. ORAL HYPOGLYCAEMICS [Concomitant]
     Indication: DIABETES MELLITUS
     Route: 065
  4. LIPID LOWERING THERAPY [Concomitant]
     Indication: HYPERLIPIDAEMIA
     Route: 065

REACTIONS (4)
  - AKATHISIA [None]
  - COGNITIVE DISORDER [None]
  - EXTRAPYRAMIDAL DISORDER [None]
  - WEIGHT INCREASED [None]
